FAERS Safety Report 5970196-9 (Version None)
Quarter: 2008Q4

REPORT INFORMATION
  Report Type: 
  Country: None (occurrence: None)
  Receive Date: 20081126
  Receipt Date: 20081014
  Transmission Date: 20090506
  Serious: No
  Sender: FDA-Public Use
  Company Number: US-ABBOTT-08P-163-0481856-00

PATIENT
  Sex: Male

DRUGS (2)
  1. SIMCOR [Suspect]
     Indication: DRUG USE FOR UNKNOWN INDICATION
     Dosage: 500/20 MG
     Dates: start: 20081007
  2. SIMCOR [Suspect]
     Dosage: 500/20MG 0.5 TAB DAILY

REACTIONS (3)
  - FLUSHING [None]
  - MUSCULAR WEAKNESS [None]
  - MYALGIA [None]
